FAERS Safety Report 5975695-1 (Version None)
Quarter: 2008Q4

REPORT INFORMATION
  Report Type: 
  Country: None (occurrence: None)
  Receive Date: 20081202
  Receipt Date: 20081127
  Transmission Date: 20090506
  Serious: Yes (Death, Other)
  Sender: FDA-Public Use
  Company Number: PHBS2008IT06474

PATIENT
  Age: 32 Year
  Sex: Male

DRUGS (10)
  1. CYCLOSPORINE [Suspect]
     Indication: CORD BLOOD TRANSPLANT THERAPY
  2. CYCLOSPORINE [Suspect]
     Indication: PROPHYLAXIS AGAINST GRAFT VERSUS HOST DISEASE
  3. METHYLPREDNISOLONE 16MG TAB [Suspect]
     Indication: CORD BLOOD TRANSPLANT THERAPY
  4. METHYLPREDNISOLONE 16MG TAB [Suspect]
     Indication: PROPHYLAXIS AGAINST GRAFT VERSUS HOST DISEASE
  5. GANCICLOVIR [Concomitant]
     Indication: PROPHYLAXIS
  6. FOSCARNET [Concomitant]
     Indication: PROPHYLAXIS
  7. ACYCLOVIR [Concomitant]
     Indication: PROPHYLAXIS
  8. IRRADIATION [Concomitant]
     Dosage: 1320 CGY
  9. THIOTEPA [Concomitant]
     Indication: CORD BLOOD TRANSPLANT THERAPY
  10. CYCLOPHOSPHAMIDE [Concomitant]
     Indication: CORD BLOOD TRANSPLANT THERAPY

REACTIONS (11)
  - ACUTE GRAFT VERSUS HOST DISEASE [None]
  - ANTEROGRADE AMNESIA [None]
  - CONFUSIONAL STATE [None]
  - CYSTITIS HAEMORRHAGIC [None]
  - CYTOMEGALOVIRUS INFECTION [None]
  - ENCEPHALITIS VIRAL [None]
  - HUMAN HERPESVIRUS 6 INFECTION [None]
  - MUCOSAL INFLAMMATION [None]
  - MULTI-ORGAN FAILURE [None]
  - PERSONALITY CHANGE [None]
  - STAPHYLOCOCCAL SEPSIS [None]
